FAERS Safety Report 12590155 (Version 1)
Quarter: 2016Q3

REPORT INFORMATION
  Report Type: Spontaneous
  Country: GB (occurrence: GB)
  Receive Date: 20160725
  Receipt Date: 20160725
  Transmission Date: 20161109
  Serious: Yes (Hospitalization)
  Sender: FDA-Public Use
  Company Number: GB-GLAXOSMITHKLINE-GB2016GSK106677

PATIENT
  Sex: Male

DRUGS (2)
  1. ZEFFIX [Suspect]
     Active Substance: LAMIVUDINE
     Indication: HEPATITIS
     Dosage: 100 MG, UNK
  2. TENOFOVIR DISOPROXIL FUMARATE. [Suspect]
     Active Substance: TENOFOVIR DISOPROXIL FUMARATE
     Indication: HEPATITIS
     Dosage: 245 MG, UNK

REACTIONS (2)
  - Malaise [Unknown]
  - Infection [Unknown]
